FAERS Safety Report 7371457 (Version 2)
Quarter: 2014Q3

REPORT INFORMATION
  Report Type: Other
  Country: US (occurrence: GB)
  Receive Date: 20100430
  Receipt Date: 20140728
  Transmission Date: 20150326
  Serious: Yes (Hospitalization, Other)
  Sender: FDA-Public Use
  Company Number: US-RANBAXY-2010US-33315

PATIENT

DRUGS (14)
  1. ACYCLOVIR (PLACEBO) [Suspect]
     Active Substance: ACYCLOVIR
     Indication: ANTIVIRAL PROPHYLAXIS
     Dosage: 400 MG, BID
     Route: 048
     Dates: start: 20081201, end: 20090224
  2. ALENDRONATE [Concomitant]
     Active Substance: ALENDRONATE SODIUM
     Indication: OSTEOPOROSIS
     Dosage: UNK, UNK
     Route: 065
  3. PARACETAMOL [Concomitant]
     Active Substance: ACETAMINOPHEN
     Indication: POSTOPERATIVE ANALGESIA
     Dosage: UNK, UNK
     Route: 065
  4. ADVAGRAF [Concomitant]
     Active Substance: TACROLIMUS
     Indication: PROPHYLAXIS AGAINST TRANSPLANT REJECTION
     Dosage: UNK, UNK
     Route: 065
  5. ALPHACALCIDOL [Concomitant]
     Indication: OSTEOPOROSIS
     Dosage: UNK, UNK
     Route: 065
  6. RANITIDINE [Concomitant]
     Active Substance: RANITIDINE\RANITIDINE HYDROCHLORIDE
     Indication: PROPHYLAXIS AGAINST GASTROINTESTINAL ULCER
     Dosage: UNK, UNK
     Route: 065
  7. GLIPIZIDE. [Concomitant]
     Active Substance: GLIPIZIDE
     Indication: BLOOD GLUCOSE INCREASED
     Dosage: UNK, UNK
     Route: 065
  8. GANCICLOVIR [Suspect]
     Active Substance: GANCICLOVIR
     Indication: ANTIVIRAL PROPHYLAXIS
     Dosage: UNK
     Route: 042
     Dates: start: 20090310
  9. FLUCONAZOLE. [Concomitant]
     Active Substance: FLUCONAZOLE
     Indication: PROPHYLAXIS
     Dosage: UNK, UNK
     Route: 065
  10. PREDNISOLONE. [Concomitant]
     Active Substance: PREDNISOLONE
     Indication: LIVER TRANSPLANT REJECTION
     Dosage: UNK, UNK
     Route: 065
  11. AZATHIOPRINE. [Concomitant]
     Active Substance: AZATHIOPRINE
     Indication: PROPHYLAXIS AGAINST TRANSPLANT REJECTION
     Dosage: UNK, UNK
     Route: 065
  12. COTRIMOXAZOLE [Concomitant]
     Active Substance: SULFAMETHOXAZOLE\TRIMETHOPRIM
     Indication: ANTIFUNGAL PROPHYLAXIS
     Dosage: UNK, UNK
     Route: 065
  13. MARBAVIR (PLACEBO) [Suspect]
     Active Substance: MARIBAVIR
     Indication: ANTIVIRAL PROPHYLAXIS
     Dosage: 100 MG, BID
     Route: 048
     Dates: start: 20081201, end: 20090224
  14. GANCICLOVIR [Suspect]
     Active Substance: GANCICLOVIR
     Indication: PROPHYLAXIS
     Dosage: 500 MG, TID
     Route: 048
     Dates: start: 20081201, end: 20090224

REACTIONS (3)
  - Liver transplant rejection [Recovered/Resolved]
  - Cytomegalovirus infection [Not Recovered/Not Resolved]
  - Drug ineffective [Unknown]

NARRATIVE: CASE EVENT DATE: 20081216
